FAERS Safety Report 21268624 (Version 4)
Quarter: 2022Q4

REPORT INFORMATION
  Report Type: Spontaneous
  Country: US (occurrence: None)
  Receive Date: 20220830
  Receipt Date: 20221122
  Transmission Date: 20230113
  Serious: Yes (Hospitalization)
  Sender: FDA-Public Use
  Company Number: US-Ultragenyx Pharmaceutical Inc.-US-UGNX-22-00507

PATIENT
  Age: 14 Year
  Sex: Female

DRUGS (11)
  1. DOJOLVI [Suspect]
     Active Substance: TRIHEPTANOIN
     Indication: Very long-chain acyl-coenzyme A dehydrogenase deficiency
     Route: 048
     Dates: start: 20210203
  2. DOJOLVI [Suspect]
     Active Substance: TRIHEPTANOIN
     Dosage: 12.5 ML VIA G-TUBE 4 TIMES A DAY
     Dates: start: 20220726
  3. VITAMIN D3 [Concomitant]
     Active Substance: CHOLECALCIFEROL
     Indication: Product used for unknown indication
     Route: 048
     Dates: start: 20220725
  4. CARNITOR [Concomitant]
     Active Substance: LEVOCARNITINE
     Indication: Product used for unknown indication
     Dosage: 8 ML (800 MG) BY MOUTH 2 TIMES A DAY, MAY ALSO USE G-TUBE
     Route: 048
     Dates: start: 20220726
  5. CARNITOR [Concomitant]
     Active Substance: LEVOCARNITINE
     Route: 048
  6. ZOFRAN-ODT [Concomitant]
     Indication: Nausea
     Dosage: DISSOLVE 1 TABLET ON THE TONGUE EVERY 8 HOURS AS NEEDED
     Route: 048
  7. ZOFRAN-ODT [Concomitant]
     Indication: Vomiting
  8. VIBRAMYCIN [Concomitant]
     Active Substance: DOXYCYCLINE
     Indication: Product used for unknown indication
     Dosage: TAKE WITH FOOD
     Route: 048
  9. VITAMIN D2 [Concomitant]
     Active Substance: ERGOCALCIFEROL
     Indication: Product used for unknown indication
     Dosage: FOR 6 DOSES
     Route: 048
  10. PEPCID [Concomitant]
     Active Substance: FAMOTIDINE
     Indication: Product used for unknown indication
     Route: 048
  11. LACTOBACILLUS ACIDOPHILUS [Concomitant]
     Active Substance: LACTOBACILLUS ACIDOPHILUS
     Indication: Product used for unknown indication
     Dosage: 10 BILLION CELLS
     Route: 048

REACTIONS (4)
  - Endoscopy [Recovered/Resolved]
  - Faecal calprotectin increased [Recovered/Resolved]
  - Diarrhoea [Not Recovered/Not Resolved]
  - Intentional product misuse [Not Recovered/Not Resolved]

NARRATIVE: CASE EVENT DATE: 20210316
